FAERS Safety Report 5514349-2 (Version None)
Quarter: 2007Q4

REPORT INFORMATION
  Report Type: 
  Country: None (occurrence: None)
  Receive Date: 20071113
  Receipt Date: 20070419
  Transmission Date: 20080405
  Serious: No
  Sender: FDA-Public Use
  Company Number: A0648005A

PATIENT
  Age: 72 Year
  Sex: Female

DRUGS (4)
  1. COREG [Suspect]
     Dosage: 25MG TWICE PER DAY
     Route: 048
     Dates: start: 20060101
  2. PLAVIX [Concomitant]
  3. ASPIRIN [Concomitant]
  4. CRESTOR [Concomitant]

REACTIONS (2)
  - ABDOMINAL PAIN UPPER [None]
  - FATIGUE [None]
